FAERS Safety Report 4839127-9 (Version None)
Quarter: 2005Q4

REPORT INFORMATION
  Report Type: 
  Country: None (occurrence: None)
  Receive Date: 20051129
  Receipt Date: 20051124
  Transmission Date: 20060501
  Serious: Yes (Hospitalization)
  Sender: FDA-Public Use
  Company Number: CH-GLAXOSMITHKLINE-B0401849A

PATIENT
  Sex: Female

DRUGS (6)
  1. DEROXAT [Suspect]
     Dosage: 10MG PER DAY
     Route: 048
  2. GINKGO BILOBA [Suspect]
     Dosage: 1U TWICE PER DAY
     Route: 048
     Dates: end: 20051101
  3. CLEXANE [Suspect]
     Dosage: 1U PER DAY
     Route: 058
     Dates: start: 20051001, end: 20051101
  4. STILNOX [Concomitant]
     Dosage: 1U PER DAY
     Route: 048
  5. TRAMADOL HCL [Concomitant]
     Dosage: 10DROP THREE TIMES PER DAY
     Route: 048
     Dates: end: 20051101
  6. DAFALGAN [Concomitant]
     Dosage: 1G FOUR TIMES PER DAY
     Route: 048
     Dates: end: 20051101

REACTIONS (4)
  - ANAEMIA [None]
  - FATIGUE [None]
  - GASTRIC ULCER HAEMORRHAGE [None]
  - MELAENA [None]
